FAERS Safety Report 18513968 (Version 1)
Quarter: 2020Q4

REPORT INFORMATION
  Report Type: Spontaneous
  Country: US (occurrence: US)
  Receive Date: 20201118
  Receipt Date: 20201118
  Transmission Date: 20210114
  Serious: No
  Sender: FDA-Public Use
  Company Number: US-ALLERGAN-2018230US

PATIENT
  Sex: Male

DRUGS (2)
  1. COSOPT [Concomitant]
     Active Substance: DORZOLAMIDE HYDROCHLORIDE\TIMOLOL MALEATE
     Route: 047
  2. ALPHAGAN P [Suspect]
     Active Substance: BRIMONIDINE TARTRATE
     Indication: INTRAOCULAR PRESSURE TEST
     Dosage: 1 GTT, BID
     Route: 047

REACTIONS (4)
  - Accidental overdose [Unknown]
  - Accidental exposure to product [Unknown]
  - Product dispensing issue [Unknown]
  - Product packaging quantity issue [Unknown]
